FAERS Safety Report 8131952-4 (Version None)
Quarter: 2012Q1

REPORT INFORMATION
  Report Type: 
  Country: None (occurrence: None)
  Receive Date: 20120208
  Receipt Date: 20120130
  Transmission Date: 20120608
  Serious: Yes (Other)
  Sender: FDA-Public Use
  Company Number: AUR-APL-2012-00784

PATIENT
  Age: 66 Year
  Sex: Female
  Weight: 73.47 kg

DRUGS (8)
  1. SIMVASTATIN [Suspect]
     Indication: BLOOD CHOLESTEROL ABNORMAL
     Dosage: (40 MG, 1 D)
     Dates: start: 19960401, end: 20120128
  2. VITAMINS (KAPSOVIT) [Concomitant]
  3. LISINOPRIL [Suspect]
     Indication: BLOOD PRESSURE ABNORMAL
     Dosage: (40 MG, 1 D)
     Dates: start: 19960801
  4. LIPITOR [Suspect]
     Indication: BLOOD CHOLESTEROL ABNORMAL
     Dosage: (80 MG, 1 D), ORAL
     Route: 048
     Dates: start: 20120105, end: 20120128
  5. NORVASC [Suspect]
     Indication: BLOOD PRESSURE ABNORMAL
     Dosage: (5 MG, 1 D)
  6. ASPIRIN [Concomitant]
  7. COREG CR [Suspect]
     Indication: CARDIAC DISORDER
     Dosage: (40 MG, 1 D)
  8. PRAVASTATIN [Suspect]
     Indication: BLOOD CHOLESTEROL ABNORMAL
     Dosage: (80 MG, 1 D)
     Dates: start: 20110101, end: 20120104

REACTIONS (4)
  - HYPERSENSITIVITY [None]
  - DRUG INEFFECTIVE [None]
  - WEIGHT DECREASED [None]
  - FATIGUE [None]
